FAERS Safety Report 7064436-5 (Version None)
Quarter: 2010Q4

REPORT INFORMATION
  Report Type: 
  Country: None (occurrence: None)
  Receive Date: 20101027
  Receipt Date: 20101015
  Transmission Date: 20110411
  Serious: Yes (Hospitalization)
  Sender: FDA-Public Use
  Company Number: PHHY2010US69409

PATIENT
  Sex: Male
  Weight: 70.4 kg

DRUGS (8)
  1. EXJADE [Suspect]
     Indication: IRON METABOLISM DISORDER
     Dosage: 1500 MG, UNK
     Route: 048
  2. TACROLIMUS [Concomitant]
     Dosage: UNK
  3. MAGNESIUM [Concomitant]
     Dosage: UNK
  4. PROTONIX [Concomitant]
     Dosage: UNK
  5. ATACAND [Concomitant]
     Dosage: UNK
  6. VALTREX [Concomitant]
     Dosage: UNK
  7. SARAFEM [Concomitant]
     Dosage: UNK
  8. ZYRTEC [Concomitant]
     Dosage: UNK

REACTIONS (1)
  - BONE MARROW TRANSPLANT [None]
